FAERS Safety Report 19078021 (Version 1)
Quarter: 2021Q1

REPORT INFORMATION
  Report Type: Spontaneous
  Country: US (occurrence: US)
  Receive Date: 20210331
  Receipt Date: 20210331
  Transmission Date: 20210420
  Serious: Yes (Death, Hospitalization)
  Sender: FDA-Public Use
  Company Number: US-MYLANLABS-2021M1018974

PATIENT
  Age: 53 Year
  Sex: Male

DRUGS (1)
  1. DEXAMETHASONE. [Suspect]
     Active Substance: DEXAMETHASONE
     Indication: METASTATIC SQUAMOUS CELL CARCINOMA
     Route: 065

REACTIONS (5)
  - Mucormycosis [Fatal]
  - Mental status changes [Unknown]
  - Cerebral fungal infection [Fatal]
  - Intracranial pressure increased [Fatal]
  - Condition aggravated [Fatal]
